FAERS Safety Report 18899381 (Version 1)
Quarter: 2021Q1

REPORT INFORMATION
  Report Type: Spontaneous
  Country: RS (occurrence: RS)
  Receive Date: 20210216
  Receipt Date: 20210216
  Transmission Date: 20210420
  Serious: Yes (Hospitalization, Other)
  Sender: FDA-Public Use
  Company Number: RS-SA-2021SA042800

PATIENT
  Age: 76 Year
  Sex: Male

DRUGS (3)
  1. AMARYL [Suspect]
     Active Substance: GLIMEPIRIDE
     Dosage: 2 MG, QD (IN THE MORNING, BEFORE BREAKFAST)
  2. INSUMAN BASAL [Suspect]
     Active Substance: INSULIN HUMAN
     Dosage: UNK
  3. INSUMAN BASAL [Suspect]
     Active Substance: INSULIN HUMAN
     Dosage: 20 IU
     Route: 058

REACTIONS (18)
  - Calcification of muscle [Unknown]
  - Hypoglycaemia [Recovered/Resolved]
  - Proteinuria [Unknown]
  - Diabetes mellitus inadequate control [Unknown]
  - Dry mouth [Unknown]
  - Visual impairment [Unknown]
  - Myalgia [Unknown]
  - Periarthritis [Unknown]
  - Nocturia [Unknown]
  - Thirst [Unknown]
  - Arthralgia [Unknown]
  - Musculoskeletal chest pain [Unknown]
  - Pain in extremity [Unknown]
  - Cholelithiasis [Unknown]
  - Lithiasis [Unknown]
  - Diabetic neuropathy [Unknown]
  - Bacterial test positive [Unknown]
  - Cough [Unknown]
